FAERS Safety Report 5483461-9 (Version None)
Quarter: 2007Q4

REPORT INFORMATION
  Report Type: 
  Country: None (occurrence: None)
  Receive Date: 20071012
  Receipt Date: 20071005
  Transmission Date: 20080405
  Serious: Yes (Hospitalization)
  Sender: FDA-Public Use
  Company Number: US-BRISTOL-MYERS SQUIBB COMPANY-13930920

PATIENT
  Age: 75 Year
  Sex: Male

DRUGS (1)
  1. COUMADIN [Suspect]
     Indication: CARDIAC DISORDER

REACTIONS (8)
  - FALL [None]
  - GANGRENE [None]
  - INFECTION [None]
  - LOSS OF CONSCIOUSNESS [None]
  - OPEN WOUND [None]
  - PYREXIA [None]
  - RASH [None]
  - SKIN DISCOLOURATION [None]
